FAERS Safety Report 22152432 (Version 3)
Quarter: 2023Q2

REPORT INFORMATION
  Report Type: Report from Study
  Country: CL (occurrence: CL)
  Receive Date: 20230329
  Receipt Date: 20230517
  Transmission Date: 20230722
  Serious: Yes (Other)
  Sender: FDA-Public Use
  Company Number: CL-002147023-NVSC2022CL237056

PATIENT
  Age: 10 Year
  Sex: Female
  Weight: 37 kg

DRUGS (2)
  1. OMNITROPE [Suspect]
     Active Substance: SOMATROPIN
     Indication: Product used for unknown indication
     Dosage: 3.6 IU, QD
     Route: 058
     Dates: start: 20220914
  2. OMNITROPE [Suspect]
     Active Substance: SOMATROPIN
     Dosage: 1.2MG, QD (10MG/1.5ML)
     Route: 058
     Dates: start: 20220920, end: 20230324

REACTIONS (5)
  - Growth retardation [Unknown]
  - Insulin-like growth factor increased [Unknown]
  - Wrong technique in device usage process [Unknown]
  - Incorrect dose administered [Unknown]
  - Drug ineffective [Unknown]

NARRATIVE: CASE EVENT DATE: 20220920
